FAERS Safety Report 13736480 (Version 1)
Quarter: 2017Q3

REPORT INFORMATION
  Report Type: Spontaneous
  Country: US (occurrence: US)
  Receive Date: 20170710
  Receipt Date: 20170710
  Transmission Date: 20171127
  Serious: Yes (Hospitalization)
  Sender: FDA-Public Use
  Company Number: US-BAYER-2017-128730

PATIENT
  Age: 70 Year
  Sex: Female

DRUGS (14)
  1. AMLODIPINE BESYLATE. [Suspect]
     Active Substance: AMLODIPINE BESYLATE
     Dosage: 5 MG, QD
  2. DIVALPROEX SODIUM. [Suspect]
     Active Substance: DIVALPROEX SODIUM
     Dosage: 500 MG, BID
  3. LEVOTHYROXINE SODIUM. [Suspect]
     Active Substance: LEVOTHYROXINE SODIUM
     Dosage: 25 ?G, QD
  4. LITHIUM. [Suspect]
     Active Substance: LITHIUM
     Dosage: 450 MG, HS
     Dates: start: 20161115, end: 20161122
  5. ACETYLSALICYLIC ACID({=100 MG) [Suspect]
     Active Substance: ASPIRIN
     Dosage: 81 MG, QD
  6. GABAPENTIN. [Suspect]
     Active Substance: GABAPENTIN
     Dosage: 300 MG, TID
  7. LITHIUM. [Suspect]
     Active Substance: LITHIUM
     Dosage: 300 MG, BID
     Dates: start: 20161108, end: 20161111
  8. LITHIUM. [Suspect]
     Active Substance: LITHIUM
     Dosage: 300 MG, TID
     Dates: start: 20161111, end: 20161114
  9. LITHIUM. [Suspect]
     Active Substance: LITHIUM
     Dosage: 300 MG, BID
     Dates: start: 20161115, end: 20161122
  10. VALPROIC ACID. [Suspect]
     Active Substance: VALPROIC ACID
     Dosage: 250 MG, HS
  11. RISPERIDONE. [Suspect]
     Active Substance: RISPERIDONE
     Dosage: 3 MG, BID
     Dates: start: 20161108
  12. RISPERIDONE. [Suspect]
     Active Substance: RISPERIDONE
     Dosage: 3.5 MG, BID
     Dates: end: 20161108
  13. LORAZEPAM. [Concomitant]
     Active Substance: LORAZEPAM
     Dosage: 1 MG, BID
  14. AMANTADINE. [Suspect]
     Active Substance: AMANTADINE HYDROCHLORIDE
     Dosage: 100 MG, BID

REACTIONS (4)
  - Aphasia [Recovered/Resolved]
  - Toxicity to various agents [Recovered/Resolved]
  - Hypernatraemia [Recovered/Resolved]
  - Drug interaction [None]
